FAERS Safety Report 20032434 (Version 4)
Quarter: 2022Q3

REPORT INFORMATION
  Report Type: Spontaneous
  Country: JP (occurrence: JP)
  Receive Date: 20211103
  Receipt Date: 20220927
  Transmission Date: 20221027
  Serious: Yes (Hospitalization, Other)
  Sender: FDA-Public Use
  Company Number: JP-BAYER-2021A240879

PATIENT
  Age: 48 Year
  Sex: Male

DRUGS (10)
  1. EYLEA [Suspect]
     Active Substance: AFLIBERCEPT
     Indication: Retinal vein occlusion
     Dosage: 0.05ML,ONCE, LEFT EYE, SOLN FOR INJ; STRENGTH: 40MG/ML
     Dates: start: 20191101, end: 20191101
  2. EYLEA [Suspect]
     Active Substance: AFLIBERCEPT
     Indication: Macular oedema
  3. WARFARIN [Concomitant]
     Active Substance: WARFARIN
     Indication: Product used for unknown indication
     Dosage: 1 TABLET/DAY
     Route: 048
  4. WARFARIN [Concomitant]
     Active Substance: WARFARIN
     Dosage: UNK
     Route: 048
  5. AZOSEMIDE [Concomitant]
     Active Substance: AZOSEMIDE
     Indication: Product used for unknown indication
     Dosage: 1.5 TABLET/DAY
     Route: 048
  6. BISOPROLOL FUMARATE [Concomitant]
     Active Substance: BISOPROLOL FUMARATE
     Indication: Product used for unknown indication
     Dosage: 1 TABLET/DAY
     Route: 048
  7. CARVEDILOL [Concomitant]
     Active Substance: CARVEDILOL
     Indication: Product used for unknown indication
     Dosage: 2 TABLETS/DAY
     Route: 048
  8. UNSPECIFIED INGREDIENT [Concomitant]
     Active Substance: UNSPECIFIED INGREDIENT
     Indication: Product used for unknown indication
     Route: 048
  9. CELLCEPT [Concomitant]
     Active Substance: MYCOPHENOLATE MOFETIL
     Indication: Renal transplant
     Dosage: 4 TABLETS/DAY
     Route: 048
  10. PREDONINE [Concomitant]
     Active Substance: PREDNISOLONE
     Indication: Renal transplant
     Dosage: 1 TABLET/DAY
     Route: 048

REACTIONS (6)
  - Cytomegalovirus chorioretinitis [Recovering/Resolving]
  - Vitreous opacities [Recovering/Resolving]
  - Retinal perivascular sheathing [Recovering/Resolving]
  - Retinal haemorrhage [Recovering/Resolving]
  - Retinal detachment [Recovering/Resolving]
  - Anterior chamber inflammation [Recovering/Resolving]

NARRATIVE: CASE EVENT DATE: 20190101
